FAERS Safety Report 9199858 (Version 2)
Quarter: 2013Q2

REPORT INFORMATION
  Report Type: Spontaneous
  Country: US (occurrence: US)
  Receive Date: 20130329
  Receipt Date: 20130415
  Transmission Date: 20140414
  Serious: Yes (Other)
  Sender: FDA-Public Use
  Company Number: US-PFIZER INC-2013099583

PATIENT
  Age: 74 Year
  Sex: Female

DRUGS (7)
  1. LYRICA [Suspect]
     Dosage: 75 MG, 2X/DAY
  2. BENICAR [Concomitant]
     Dosage: UNK
  3. SPIRIVA [Concomitant]
     Dosage: UNK
  4. ZOFRAN [Concomitant]
     Dosage: UNK
  5. XANAX [Concomitant]
     Dosage: UNK
  6. FLONASE [Concomitant]
     Dosage: UNK
  7. ADVAIR [Concomitant]
     Dosage: UNK

REACTIONS (1)
  - Neoplasm malignant [Unknown]
